FAERS Safety Report 16018497 (Version 1)
Quarter: 2019Q1

REPORT INFORMATION
  Report Type: Spontaneous
  Country: US (occurrence: US)
  Receive Date: 20190201
  Receipt Date: 20190201
  Transmission Date: 20190418
  Serious: No
  Sender: FDA-Public Use
  Company Number: None

PATIENT
  Age: 60 Year
  Sex: Female

DRUGS (1)
  1. CAPECITABINE TAB 500MG [Suspect]
     Active Substance: CAPECITABINE
     Dates: start: 201901

REACTIONS (5)
  - Nausea [None]
  - Gastrooesophageal reflux disease [None]
  - Decreased appetite [None]
  - Salt craving [None]
  - Fluid retention [None]

NARRATIVE: CASE EVENT DATE: 20190201
